FAERS Safety Report 5237028-8 (Version None)
Quarter: 2007Q1

REPORT INFORMATION
  Report Type: 
  Country: None (occurrence: None)
  Receive Date: 20070209
  Receipt Date: 20070126
  Transmission Date: 20070707
  Serious: Yes (Life-Threatening, Hospitalization, Other)
  Sender: FDA-Public Use
  Company Number: WAES 0511ESP00014

PATIENT
  Age: 5 Year
  Sex: Female

DRUGS (60)
  1. AMPHOTERICIN B [Suspect]
     Indication: FEBRILE NEUTROPENIA
     Dosage: 3.0 MG/KG DAILY, IV
     Route: 042
     Dates: start: 20051110, end: 20051110
  2. INJ PLACEBO (UNSPECIFIED) [Suspect]
     Indication: FEBRILE NEUTROPENIA
     Dosage: IV
     Route: 042
     Dates: start: 20051110, end: 20051110
  3. ACETAMINOPHEN [Concomitant]
  4. ANTILYMPHOCYTE IMMUNOGLOBULIN [Concomitant]
  5. BLOOD CELLS, RED [Concomitant]
  6. BLOOD CELLS, RED [Concomitant]
  7. BLOOD CELLS, RED [Concomitant]
  8. CASPOFUNGIN ACETATE [Concomitant]
  9. CASPOFUNGIN ACETATE [Concomitant]
  10. CASPOFUNGIN ACETATE [Concomitant]
  11. CEFTAZIDIME [Concomitant]
  12. CEFTAZIDIME [Concomitant]
  13. CEFTAZIDIME [Concomitant]
  14. CEFTAZIDIME [Concomitant]
  15. CEFTAZIDIME [Concomitant]
  16. CLORAZEPATE DIPOTASSIUM [Concomitant]
  17. DEFIBROTIDE [Concomitant]
  18. DEXCHLORPHENIRAMINE MALEATE [Concomitant]
  19. DEXCHLORPHENIRAMINE MALEATE [Concomitant]
  20. DEXCHLORPHENIRAMINE MALEATE [Concomitant]
  21. DEXCHLORPIHENIRAMINE MALEATE [Concomitant]
  22. DEXCHLORPHENIRAMINE MALEATE [Concomitant]
  23. DIPYRONE INJ [Concomitant]
  24. DOPAMINE HCL [Concomitant]
  25. EPOETIN [Concomitant]
  26. ETOPOSIDE [Concomitant]
  27. FLUCONAZOLE [Concomitant]
  28. FLUDARABINE PHOSPHATE [Concomitant]
  29. FUROSEMIDE [Concomitant]
  30. FUROSEMIDE [Concomitant]
  31. IMMUNE GLOBULIN (HUMAN) [Concomitant]
  32. IMMUNE GLOBULIN (HUMAN) [Concomitant]
  33. GRANISETRON [Concomitant]
  34. HYDROCORTISONE [Concomitant]
  35. HYDROXYZINE HYDROCHLORIDE [Concomitant]
  36. MEPERIDINE HCL [Concomitant]
  37. MEROPENEM [Concomitant]
  38. MEROPENEM [Concomitant]
  39. MEROPENEM [Concomitant]
  40. METHYLPREDNISOLONE 16MG TAB [Concomitant]
  41. METHYLPREDNISOLONE 16MG TAB [Concomitant]
  42. NUTRITIONAL SUPPLEMENTS [Concomitant]
  43. ONDANSETRON [Concomitant]
  44. OXYGEN [Concomitant]
  45. PLATELETS [Concomitant]
  46. PLATELETS [Concomitant]
  47. PLATELETS [Concomitant]
  48. PLATELETS [Concomitant]
  49. RANITIDINE [Concomitant]
  50. SULFAMETHOXAZOLE + TRIMETHOPRIM [Concomitant]
  51. SULFAMETHOXAZOLE + TRIMETHOPRIM [Concomitant]
  52. SULFAMETHOXAZOLE + TRIMETHOPRIM [Concomitant]
  53. SULFAMETHOXAZOLE + TRIMETHOPRIM [Concomitant]
  54. TEICOPLANIN [Concomitant]
  55. TEICOPLANIN [Concomitant]
  56. TEICOPLANIN [Concomitant]
  57. VANCOMYCIN HYDROCHLORIDE [Concomitant]
  58. VANCOMYCIN HYDROCHLORIDE [Concomitant]
  59. VANCOMYCIN HYDROCHLORIDE [Concomitant]
  60. VANCOMYCIN HYDROCHLORIDE [Concomitant]

REACTIONS (24)
  - ALANINE AMINOTRANSFERASE INCREASED [None]
  - ASPARTATE AMINOTRANSFERASE INCREASED [None]
  - BILIRUBIN CONJUGATED INCREASED [None]
  - BLOOD ALBUMIN DECREASED [None]
  - BLOOD ALKALINE PHOSPHATASE INCREASED [None]
  - BLOOD BILIRUBIN INCREASED [None]
  - BLOOD CREATININE INCREASED [None]
  - BLOOD CULTURE POSITIVE [None]
  - BLOOD PHOSPHORUS INCREASED [None]
  - BLOOD PRESSURE DECREASED [None]
  - CIRCUMORAL OEDEMA [None]
  - GRAFT VERSUS HOST DISEASE [None]
  - HEPATOSPLENOMEGALY [None]
  - IMMUNOLOGY TEST ABNORMAL [None]
  - INFUSION RELATED REACTION [None]
  - INTERSTITIAL LUNG DISEASE [None]
  - PROTEIN TOTAL DECREASED [None]
  - PRURITUS [None]
  - RASH [None]
  - SEPSIS [None]
  - SPEECH DISORDER [None]
  - STAPHYLOCOCCAL INFECTION [None]
  - TACHYCARDIA [None]
  - TRANSAMINASES INCREASED [None]
